FAERS Safety Report 4356474-8 (Version None)
Quarter: 2004Q2

REPORT INFORMATION
  Report Type: 
  Country: None (occurrence: None)
  Receive Date: 20040512
  Receipt Date: 20040322
  Transmission Date: 20050107
  Serious: Yes (Hospitalization)
  Sender: FDA-Public Use
  Company Number: 200413402GDDC

PATIENT
  Age: 59 Year
  Sex: Male
  Weight: 80 kg

DRUGS (1)
  1. FLUDEX [Suspect]
     Indication: HYPERTENSION
     Dosage: DOSE: 1.5 MG COATED TABLETS
     Route: 048
     Dates: start: 20040103, end: 20040203

REACTIONS (12)
  - AMNESIA [None]
  - CARDIAC ARREST [None]
  - COMA [None]
  - CONFUSIONAL STATE [None]
  - DUODENAL ULCER [None]
  - HYPOKALAEMIA [None]
  - MEDICATION ERROR [None]
  - MELAENA [None]
  - RESPIRATORY TRACT INFECTION [None]
  - STREPTOCOCCAL INFECTION [None]
  - TORSADE DE POINTES [None]
  - VENTRICULAR ARRHYTHMIA [None]
